APPROVED DRUG PRODUCT: DARVOCET
Active Ingredient: ACETAMINOPHEN; PROPOXYPHENE HYDROCHLORIDE
Strength: 325MG;32.5MG
Dosage Form/Route: TABLET;ORAL
Application: N016844 | Product #001
Applicant: AAIPHARMA LLC
Approved: Approved Prior to Jan 1, 1982 | RLD: No | RS: No | Type: DISCN